FAERS Safety Report 6848976-7 (Version None)
Quarter: 2010Q3

REPORT INFORMATION
  Report Type: 
  Country: None (occurrence: None)
  Receive Date: 20100716
  Receipt Date: 20070924
  Transmission Date: 20110219
  Serious: Yes (Other)
  Sender: FDA-Public Use
  Company Number: US-PFIZER INC-2007081112

PATIENT
  Sex: Female
  Weight: 60.8 kg

DRUGS (6)
  1. CHANTIX [Suspect]
     Indication: SMOKING CESSATION THERAPY
     Dates: start: 20070919
  2. PERCOCET [Concomitant]
     Indication: PAIN
  3. CLONAZEPAM [Concomitant]
     Indication: ANXIETY
  4. LEXAPRO [Concomitant]
     Indication: DEPRESSION
  5. NADOLOL [Concomitant]
     Indication: HYPERTENSION
  6. AVAPRO [Concomitant]

REACTIONS (4)
  - ABNORMAL DREAMS [None]
  - DREAMY STATE [None]
  - DYSPNOEA [None]
  - INSOMNIA [None]
